FAERS Safety Report 5764791-X (Version None)
Quarter: 2008Q2

REPORT INFORMATION
  Report Type: 
  Country: None (occurrence: None)
  Receive Date: 20080611
  Receipt Date: 20080606
  Transmission Date: 20081010
  Serious: Yes (Life-Threatening, Hospitalization)
  Sender: FDA-Public Use
  Company Number: GB-WYE-G01652208

PATIENT
  Age: 62 Year
  Sex: Male

DRUGS (3)
  1. IBUPROFEN [Suspect]
     Indication: NECK PAIN
     Route: 048
     Dates: start: 20080417, end: 20080422
  2. OMEPRAZOLE [Concomitant]
     Indication: GASTROOESOPHAGEAL REFLUX DISEASE
     Route: 048
  3. ETODOLAC [Suspect]
     Indication: GOUT
     Route: 048
     Dates: start: 20080422

REACTIONS (2)
  - DUODENAL ULCER PERFORATION [None]
  - LETHARGY [None]
